FAERS Safety Report 6208701-X (Version None)
Quarter: 2009Q2

REPORT INFORMATION
  Report Type: 
  Country: None (occurrence: None)
  Receive Date: 20090529
  Receipt Date: 20090526
  Transmission Date: 20091009
  Serious: Yes (Other)
  Sender: FDA-Public Use
  Company Number: US-BAYER-200910513BCC

PATIENT
  Age: 14 Year
  Sex: Female
  Weight: 59 kg

DRUGS (1)
  1. MIDOL [Suspect]
     Indication: DRUG USE FOR UNKNOWN INDICATION
     Dosage: TOTAL DAILY DOSE: 12 DF  UNIT DOSE: 1 DF
     Route: 048
     Dates: start: 20090218

REACTIONS (1)
  - UNEVALUABLE EVENT [None]
